FAERS Safety Report 26017895 (Version 1)
Quarter: 2025Q4

REPORT INFORMATION
  Report Type: Spontaneous
  Country: CN (occurrence: CN)
  Receive Date: 20251110
  Receipt Date: 20251110
  Transmission Date: 20260118
  Serious: Yes (Life-Threatening)
  Sender: JOHNSON AND JOHNSON
  Company Number: CN-VIIV HEALTHCARE-CN2025CHI143407

PATIENT
  Age: 36 Year
  Sex: Male

DRUGS (3)
  1. RILPIVIRINE [Suspect]
     Active Substance: RILPIVIRINE
     Indication: HIV infection
     Dosage: 3 ML, MO
     Route: 030
     Dates: start: 202506, end: 202507
  2. VOCABRIA [Suspect]
     Active Substance: CABOTEGRAVIR SODIUM
     Indication: HIV infection
     Dosage: 3 ML, MO
     Route: 030
     Dates: start: 202506, end: 202507
  3. BIKTARVY [Concomitant]
     Active Substance: BICTEGRAVIR SODIUM\EMTRICITABINE\TENOFOVIR ALAFENAMIDE FUMARATE
     Indication: HIV infection
     Dosage: UNK
     Route: 048

REACTIONS (1)
  - Alcohol intolerance [Recovered/Resolved]

NARRATIVE: CASE EVENT DATE: 20250701
